FAERS Safety Report 11497507 (Version 1)
Quarter: 2015Q3

REPORT INFORMATION
  Report Type: Spontaneous
  Country: AR (occurrence: AR)
  Receive Date: 20150911
  Receipt Date: 20150911
  Transmission Date: 20151125
  Serious: Yes (Other)
  Sender: FDA-Public Use
  Company Number: CHPA2015AR007529

PATIENT
  Age: 78 Year
  Sex: Female

DRUGS (2)
  1. NICOTINELL [Suspect]
     Active Substance: NICOTINE
     Indication: SMOKING CESSATION THERAPY
     Dosage: 4 DF, DAILY
     Route: 065
     Dates: start: 2012, end: 201506
  2. NICOTINELL [Suspect]
     Active Substance: NICOTINE
     Indication: SMOKING CESSATION THERAPY
     Dosage: 4 DF, DAILY
     Route: 065
     Dates: start: 2012, end: 201506

REACTIONS (4)
  - Fatigue [Not Recovered/Not Resolved]
  - Bronchospasm [Recovering/Resolving]
  - Anxiety [Recovering/Resolving]
  - Pneumonia [Recovering/Resolving]

NARRATIVE: CASE EVENT DATE: 20150822
